FAERS Safety Report 4594757-7 (Version None)
Quarter: 2005Q1

REPORT INFORMATION
  Report Type: 
  Country: None (occurrence: None)
  Receive Date: 20050223
  Receipt Date: 20050211
  Transmission Date: 20050727
  Serious: Yes (Other)
  Sender: FDA-Public Use
  Company Number: 2005029308

PATIENT
  Age: 76 Year
  Sex: Male
  Weight: 90.2658 kg

DRUGS (9)
  1. INSPRA [Suspect]
     Indication: HYPERTENSION
     Dosage: 25 MG (25 MG, DAILY) , ORAL
     Route: 048
     Dates: start: 20050208
  2. ALDACTONE [Suspect]
     Indication: HYPERTENSION
     Dosage: 50 MG (25 MG, BID), ORAL
     Route: 048
     Dates: end: 20050207
  3. METOPROLOL TARTRATE [Concomitant]
  4. EZETIMIBE/SIMVASTATIN (EZETIMIBE, SIMVASTATIN) [Concomitant]
  5. FINASTERIDE 9FINASTERIDE) [Concomitant]
  6. CARBAMAPEZINE (CARBAMAZEPINE) [Concomitant]
  7. COSOPT [Concomitant]
  8. WARFARIN SODIUM [Concomitant]
  9. HYDROXYZINE HCL [Concomitant]

REACTIONS (5)
  - BLOOD PRESSURE INCREASED [None]
  - BREAST TENDERNESS [None]
  - CEREBROVASCULAR ACCIDENT [None]
  - HEADACHE [None]
  - HYPERTROPHY BREAST [None]
